FAERS Safety Report 7266630-7 (Version None)
Quarter: 2011Q1

REPORT INFORMATION
  Report Type: 
  Country: None (occurrence: None)
  Receive Date: 20110131
  Receipt Date: 20110118
  Transmission Date: 20110831
  Serious: Yes (Hospitalization)
  Sender: FDA-Public Use
  Company Number: US-ELI_LILLY_AND_COMPANY-US200709005265

PATIENT
  Sex: Female
  Weight: 50.793 kg

DRUGS (5)
  1. DIURETICS [Concomitant]
  2. ERGOCALCIFEROL/CALCIUM PHOSP/CALCIUM SOD LACT [Concomitant]
     Dosage: 800 IU, DAILY (1/D)
  3. EVISTA [Suspect]
     Indication: OSTEOPOROSIS
     Dosage: 60 MG, UNK
     Route: 048
  4. NORVASC [Concomitant]
  5. CALCIUM CARBONATE [Concomitant]
     Dosage: 1200 MG, DAILY (1/D)

REACTIONS (3)
  - FEMORAL NECK FRACTURE [None]
  - PAIN [None]
  - KYPHOSIS [None]
